FAERS Safety Report 9880583 (Version 2)
Quarter: 2014Q2

REPORT INFORMATION
  Report Type: Spontaneous
  Country: BR (occurrence: None)
  Receive Date: 20140205
  Receipt Date: 20140414
  Transmission Date: 20141212
  Serious: Yes (Other)
  Sender: FDA-Public Use
  Company Number: 7265297

PATIENT
  Age: 45 Year
  Sex: Female

DRUGS (1)
  1. EUTHYROX [Suspect]
     Indication: POST PROCEDURAL COMPLICATION

REACTIONS (6)
  - Post procedural hypothyroidism [None]
  - Malaise [None]
  - Somnolence [None]
  - Fatigue [None]
  - Apathy [None]
  - Swelling [None]
